FAERS Safety Report 4848215-2 (Version None)
Quarter: 2005Q4

REPORT INFORMATION
  Report Type: 
  Country: None (occurrence: None)
  Receive Date: 20051206
  Receipt Date: 20051117
  Transmission Date: 20060501
  Serious: Yes (Death)
  Sender: FDA-Public Use
  Company Number: US200511001567

PATIENT
  Sex: Male

DRUGS (2)
  1. OLANZAPINE [Suspect]
     Dosage: 40 + 25 MG
     Dates: end: 20010301
  2. OLANZAPINE [Suspect]
     Dosage: 40 + 25 MG
     Dates: end: 20030303

REACTIONS (1)
  - PRESCRIBED OVERDOSE [None]
